FAERS Safety Report 6683987-6 (Version None)
Quarter: 2010Q2

REPORT INFORMATION
  Report Type: 
  Country: None (occurrence: None)
  Receive Date: 20100416
  Receipt Date: 20090622
  Transmission Date: 20101027
  Serious: Yes (Life-Threatening, Hospitalization, Other)
  Sender: FDA-Public Use
  Company Number: JP-JNJFOC-20090300764

PATIENT
  Sex: Female
  Weight: 73 kg

DRUGS (24)
  1. REMICADE [Suspect]
     Indication: BEHCET'S SYNDROME
     Route: 042
  2. REMICADE [Suspect]
     Route: 042
  3. REMICADE [Suspect]
     Route: 042
  4. REMICADE [Suspect]
     Dosage: TOTAL OF 4 INFUSIONS
     Route: 042
  5. REMICADE [Suspect]
     Route: 042
  6. PREDNISOLONE [Suspect]
     Indication: BEHCET'S SYNDROME
     Route: 048
  7. PREDNISOLONE [Suspect]
     Route: 048
  8. PREDNISOLONE [Suspect]
     Route: 048
  9. PREDNISOLONE [Suspect]
     Route: 048
  10. COLCHICINE [Concomitant]
     Indication: BEHCET'S SYNDROME
     Route: 048
  11. COLCHICINE [Concomitant]
     Route: 048
  12. COLCHICINE [Concomitant]
     Route: 048
  13. COLCHICINE [Concomitant]
     Route: 048
  14. COLCHICINE [Concomitant]
     Route: 048
  15. ITOROL [Concomitant]
     Indication: ANGINA PECTORIS
     Route: 048
  16. AMOBAN [Concomitant]
     Indication: INSOMNIA
     Route: 048
  17. ALOSENN [Concomitant]
     Indication: CONSTIPATION
     Route: 048
  18. DILTIAZEM HYDROCHLORIDE [Concomitant]
     Indication: HYPERTENSION
     Route: 048
  19. KALGUT [Concomitant]
     Indication: CARDIAC FAILURE
     Route: 048
  20. ISCOTIN [Concomitant]
     Indication: ANTIBIOTIC PROPHYLAXIS
     Route: 048
  21. ANTIHISTAMINES [Concomitant]
     Indication: PROPHYLAXIS
  22. ANTIHISTAMINES [Concomitant]
  23. ANTIHISTAMINES [Concomitant]
  24. SHAKUYAKUKANZOUTOU [Concomitant]
     Indication: MUSCLE SPASMS
     Route: 048

REACTIONS (4)
  - ANGINA PECTORIS [None]
  - MONONEUROPATHY MULTIPLEX [None]
  - MUSCULAR WEAKNESS [None]
  - URINARY TRACT INFECTION [None]
